FAERS Safety Report 4832270-X (Version None)
Quarter: 2005Q4

REPORT INFORMATION
  Report Type: 
  Country: None (occurrence: None)
  Receive Date: 20051119
  Receipt Date: 20051109
  Transmission Date: 20060501
  Serious: Yes (Hospitalization)
  Sender: FDA-Public Use
  Company Number: GB-ABBOTT-05P-167-0317030-00

PATIENT
  Sex: Female
  Weight: 58 kg

DRUGS (7)
  1. HUMIRA [Suspect]
     Indication: RHEUMATOID ARTHRITIS
     Dates: start: 20041014, end: 20050804
  2. PREDNISOLONE [Concomitant]
     Indication: DRUG USE FOR UNKNOWN INDICATION
  3. CARBAZOCHROME [Concomitant]
     Indication: DRUG USE FOR UNKNOWN INDICATION
  4. CODYDRAMOL [Concomitant]
     Indication: DRUG USE FOR UNKNOWN INDICATION
  5. RISEDRONATE [Concomitant]
     Indication: DRUG USE FOR UNKNOWN INDICATION
  6. TRAZODONE [Concomitant]
     Indication: DRUG USE FOR UNKNOWN INDICATION
  7. VENLAFAXINE HCL [Concomitant]
     Indication: DRUG USE FOR UNKNOWN INDICATION

REACTIONS (1)
  - CHRONIC OBSTRUCTIVE PULMONARY DISEASE [None]
